FAERS Safety Report 15598526 (Version 1)
Quarter: 2018Q4

REPORT INFORMATION
  Report Type: Spontaneous
  Country: US (occurrence: US)
  Receive Date: 20181107
  Receipt Date: 20181107
  Transmission Date: 20190205
  Serious: Yes (Life-Threatening, Hospitalization)
  Sender: FDA-Public Use
  Company Number: None

PATIENT
  Age: 49 Year
  Sex: Female
  Weight: 136.08 kg

DRUGS (13)
  1. REMERON [Suspect]
     Active Substance: MIRTAZAPINE
     Indication: INSOMNIA
     Dosage: ?          QUANTITY:1 DF DOSAGE FORM;?
     Route: 048
     Dates: start: 20180524
  2. FLONASE [Concomitant]
     Active Substance: FLUTICASONE PROPIONATE
  3. VERAPAMIL [Concomitant]
     Active Substance: VERAPAMIL HYDROCHLORIDE
  4. HALDOL [Concomitant]
     Active Substance: HALOPERIDOL
  5. LASIX [Concomitant]
     Active Substance: FUROSEMIDE
  6. REMERON [Suspect]
     Active Substance: MIRTAZAPINE
     Indication: DEPRESSION
     Dosage: ?          QUANTITY:1 DF DOSAGE FORM;?
     Route: 048
     Dates: start: 20180524
  7. LISINOPRIL. [Concomitant]
     Active Substance: LISINOPRIL
  8. MIRBAZAPINE [Concomitant]
  9. COGENTIN [Concomitant]
     Active Substance: BENZTROPINE MESYLATE
  10. MONTELUKAST [Concomitant]
     Active Substance: MONTELUKAST SODIUM
  11. POTASSIUM [Concomitant]
     Active Substance: POTASSIUM
  12. DOXEPIN [Concomitant]
     Active Substance: DOXEPIN
  13. PREVACID [Concomitant]
     Active Substance: LANSOPRAZOLE

REACTIONS (5)
  - Oedema peripheral [None]
  - Therapy change [None]
  - Pulmonary thrombosis [None]
  - Thrombosis [None]
  - Stress [None]

NARRATIVE: CASE EVENT DATE: 20180524
